FAERS Safety Report 7289914-5 (Version None)
Quarter: 2011Q1

REPORT INFORMATION
  Report Type: 
  Country: None (occurrence: None)
  Receive Date: 20110214
  Receipt Date: 20110201
  Transmission Date: 20110831
  Serious: Yes (Other)
  Sender: FDA-Public Use
  Company Number: ES-ELI_LILLY_AND_COMPANY-ES201102000425

PATIENT
  Sex: Female
  Weight: 52 kg

DRUGS (8)
  1. GLYBURIDE [Concomitant]
     Indication: DIABETES MELLITUS
     Route: 048
  2. TRANKIMAZIN [Concomitant]
     Indication: SLEEP DISORDER
     Route: 048
  3. PARACETAMOL [Concomitant]
     Indication: PAIN
     Route: 048
  4. TIMOLOL [Concomitant]
     Indication: GLAUCOMA
  5. ADIRO [Concomitant]
     Dosage: 100 MG, DAILY (1/D)
     Route: 048
  6. GLUMIDA [Concomitant]
     Indication: DIABETES MELLITUS
     Route: 048
  7. FORTEO [Suspect]
     Indication: OSTEOPOROSIS
     Dosage: 20 UG, DAILY (1/D)
     Route: 058
     Dates: start: 20091109
  8. NATECAL [Concomitant]
     Indication: OSTEOPOROSIS
     Route: 048

REACTIONS (2)
  - PELVIC FRACTURE [None]
  - FALL [None]
